FAERS Safety Report 14641235 (Version 4)
Quarter: 2018Q2

REPORT INFORMATION
  Report Type: Spontaneous
  Country: US (occurrence: US)
  Receive Date: 20180315
  Receipt Date: 20180422
  Transmission Date: 20180711
  Serious: No
  Sender: FDA-Public Use
  Company Number: US-APOTEX-2017AP022187

PATIENT
  Age: 52 Year
  Sex: Female

DRUGS (5)
  1. VORTIOXETINE. [Concomitant]
     Active Substance: VORTIOXETINE
     Indication: ANTIDEPRESSANT THERAPY
     Route: 065
  2. PAROXETINE. [Suspect]
     Active Substance: PAROXETINE
     Indication: ANTIDEPRESSANT THERAPY
     Route: 065
  3. LAMOTRIGINE. [Suspect]
     Active Substance: LAMOTRIGINE
     Indication: ANTIDEPRESSANT THERAPY
     Route: 065
  4. SERTRALINE HYDROCHLORIDE. [Suspect]
     Active Substance: SERTRALINE HYDROCHLORIDE
     Indication: ANTIDEPRESSANT THERAPY
     Route: 065
  5. VILAZODONE [Suspect]
     Active Substance: VILAZODONE
     Indication: ANTIDEPRESSANT THERAPY
     Route: 065

REACTIONS (4)
  - Anosmia [Recovered/Resolved]
  - Hypogeusia [Recovered/Resolved]
  - Hyposmia [Recovered/Resolved]
  - Olfactory nerve disorder [Recovered/Resolved]
